FAERS Safety Report 5024717-3 (Version None)
Quarter: 2006Q2

REPORT INFORMATION
  Report Type: 
  Country: None (occurrence: None)
  Receive Date: 20060607
  Receipt Date: 20060524
  Transmission Date: 20061013
  Serious: Yes (Death)
  Sender: FDA-Public Use
  Company Number: 2006EU001649

PATIENT
  Age: 58 Year

DRUGS (1)
  1. PROGRAF [Suspect]
     Indication: LIVER TRANSPLANT
     Dosage: D, ORAL
     Route: 048

REACTIONS (8)
  - BILIARY CIRRHOSIS PRIMARY [None]
  - DISEASE RECURRENCE [None]
  - GRAFT DYSFUNCTION [None]
  - INFECTION [None]
  - LIVER TRANSPLANT REJECTION [None]
  - MULTI-ORGAN DISORDER [None]
  - NEOPLASM [None]
  - SEPSIS [None]
